FAERS Safety Report 16063373 (Version 1)
Quarter: 2019Q1

REPORT INFORMATION
  Report Type: Report from Study
  Country: US (occurrence: US)
  Receive Date: 20190312
  Receipt Date: 20190312
  Transmission Date: 20190418
  Serious: Yes (Other)
  Sender: FDA-Public Use
  Company Number: US-SA-2019SA063895

PATIENT
  Age: 10 Year

DRUGS (2)
  1. G-CSF [Suspect]
     Active Substance: GRANULOCYTE COLONY-STIMULATING FACTOR NOS
     Dosage: UNK
  2. PLERIXAFOR [Suspect]
     Active Substance: PLERIXAFOR
     Dosage: UNK

REACTIONS (1)
  - Cytopenia [Unknown]
